FAERS Safety Report 7620988-5 (Version None)
Quarter: 2011Q3

REPORT INFORMATION
  Report Type: 
  Country: None (occurrence: None)
  Receive Date: 20110719
  Receipt Date: 20100813
  Transmission Date: 20111222
  Serious: No
  Sender: FDA-Public Use
  Company Number: US-KINGPHARMUSA00001-K201001032

PATIENT
  Age: 61 Year
  Sex: Female

DRUGS (6)
  1. LEVOXYL [Suspect]
     Dosage: 137 MCG, 6X/W
     Route: 048
     Dates: end: 20100401
  2. CLIMARA [Suspect]
     Indication: HORMONE REPLACEMENT THERAPY
     Dosage: 0.0375 MG, UNK
     Route: 061
     Dates: start: 20100503, end: 20100514
  3. LEVOXYL [Suspect]
     Dosage: 137 MCG, QD 6X/W + 68.5 QD QW
     Route: 048
     Dates: start: 20100608
  4. LEVOXYL [Suspect]
     Indication: HYPOTHYROIDISM
     Dosage: 137 MCG, QD
     Route: 048
     Dates: start: 20100401, end: 20100607
  5. LEVOXYL [Suspect]
     Dosage: 125 MCG, QD
     Route: 048
     Dates: start: 19940101
  6. CLIMARA [Suspect]
     Dosage: 0.05 MG, UNK
     Route: 061
     Dates: start: 20100514

REACTIONS (2)
  - HERPES ZOSTER [None]
  - BLOOD THYROID STIMULATING HORMONE DECREASED [None]
